FAERS Safety Report 22996226 (Version 2)
Quarter: 2023Q4

REPORT INFORMATION
  Report Type: Report from Study
  Country: US (occurrence: US)
  Receive Date: 20230927
  Receipt Date: 20231024
  Transmission Date: 20240110
  Serious: Yes (Hospitalization)
  Sender: FDA-Public Use
  Company Number: US-ABBVIE-5424571

PATIENT
  Sex: Female

DRUGS (1)
  1. HUMIRA [Suspect]
     Active Substance: ADALIMUMAB
     Indication: Hidradenitis
     Dosage: CITRATE FREE; FORM STRENGTH: 40 MG
     Route: 058

REACTIONS (9)
  - Pericardial effusion [Unknown]
  - Injection site pruritus [Recovered/Resolved]
  - Pleural effusion [Unknown]
  - Diabetes mellitus [Unknown]
  - Gastrointestinal inflammation [Unknown]
  - Diverticulitis [Unknown]
  - Injection site swelling [Recovered/Resolved]
  - Unevaluable event [Unknown]
  - Skin disorder [Unknown]
